FAERS Safety Report 4915231-1 (Version None)
Quarter: 2006Q1

REPORT INFORMATION
  Report Type: 
  Country: None (occurrence: None)
  Receive Date: 20060216
  Receipt Date: 20060216
  Transmission Date: 20060701
  Serious: Yes (Hospitalization)
  Sender: FDA-Public Use
  Company Number: None

PATIENT
  Age: 83 Year
  Sex: Male
  Weight: 64 kg

DRUGS (2)
  1. MORPHINE [Suspect]
     Indication: PAIN
  2. MORPHINE [Suspect]
     Indication: PELVIC FRACTURE

REACTIONS (4)
  - BRADYCARDIA [None]
  - HYPERHIDROSIS [None]
  - HYPOTENSION [None]
  - SYNCOPE [None]
